FAERS Safety Report 7419031-2 (Version None)
Quarter: 2011Q2

REPORT INFORMATION
  Report Type: 
  Country: None (occurrence: None)
  Receive Date: 20110415
  Receipt Date: 20110406
  Transmission Date: 20111010
  Serious: Yes (Disabling)
  Sender: FDA-Public Use
  Company Number: FR-ASTRAZENECA-2011SE20489

PATIENT
  Age: 50 Year
  Sex: Male

DRUGS (2)
  1. NAROPIN [Suspect]
     Dosage: 6 TO 10 ML/HOUR
     Route: 053
  2. NAROPIN [Suspect]
     Route: 053
     Dates: start: 20100907, end: 20100907

REACTIONS (2)
  - AMYOTROPHY [None]
  - PERIPHERAL NERVE LESION [None]
